FAERS Safety Report 6157823-0 (Version None)
Quarter: 2009Q2

REPORT INFORMATION
  Report Type: 
  Country: None (occurrence: None)
  Receive Date: 20090414
  Receipt Date: 20090330
  Transmission Date: 20091009
  Serious: Yes (Hospitalization)
  Sender: FDA-Public Use
  Company Number: 1000005624

PATIENT
  Age: 88 Year
  Sex: Female

DRUGS (3)
  1. NEBIVOLOL HCL [Suspect]
     Indication: VENTRICULAR EXTRASYSTOLES
     Dosage: 5 MG (5 MG,1 IN 1 D),ORAL
     Route: 048
     Dates: start: 20090220, end: 20090312
  2. COMBISARTAN [Suspect]
     Indication: HYPERTENSION
     Dosage: 160/25 MG (1 IN 1 D),ORAL
     Route: 048
     Dates: start: 20070301, end: 20090312
  3. HALCION [Concomitant]

REACTIONS (5)
  - BLOOD PRESSURE FLUCTUATION [None]
  - DRUG PRESCRIBING ERROR [None]
  - DYSPNOEA [None]
  - HAEMOGLOBIN DECREASED [None]
  - VERTIGO [None]
